FAERS Safety Report 20327659 (Version 3)
Quarter: 2022Q1

REPORT INFORMATION
  Report Type: Spontaneous
  Country: AR (occurrence: AR)
  Receive Date: 20220112
  Receipt Date: 20220202
  Transmission Date: 20220423
  Serious: Yes (Hospitalization)
  Sender: FDA-Public Use
  Company Number: AR-SA-SAC20220105001011

PATIENT
  Sex: Male
  Weight: 2.6 kg

DRUGS (1)
  1. ENOXAPARIN SODIUM [Suspect]
     Active Substance: ENOXAPARIN SODIUM
     Indication: Uterine irrigation
     Dosage: 40 MG, Q12H
     Route: 064
     Dates: start: 20210505

REACTIONS (4)
  - Agitation [Recovered/Resolved]
  - Respiration abnormal [Recovered/Resolved]
  - Temperature regulation disorder [Recovered/Resolved]
  - Exposure during pregnancy [Unknown]

NARRATIVE: CASE EVENT DATE: 20211218
